FAERS Safety Report 24224581 (Version 1)
Quarter: 2024Q3

REPORT INFORMATION
  Report Type: Spontaneous
  Country: GB (occurrence: GB)
  Receive Date: 20240819
  Receipt Date: 20240819
  Transmission Date: 20241016
  Serious: Yes (Other)
  Sender: SANOFI AVENTIS
  Company Number: GB-MHRA-TPP26784073C8166370YC1723458364485

PATIENT
  Age: 31 Year
  Sex: Female
  Weight: 84 kg

DRUGS (17)
  1. ENOXAPARIN SODIUM [Suspect]
     Active Substance: ENOXAPARIN SODIUM
     Indication: Ill-defined disorder
     Dosage: 1 DF, QD
     Dates: start: 20240805, end: 20240810
  2. FERROUS SULFATE [Concomitant]
     Active Substance: FERROUS SULFATE
     Indication: Ill-defined disorder
     Dosage: UNK (TAKE ONE- TWO DAILY)
     Dates: start: 20240707
  3. ERYTHROMYCIN [Concomitant]
     Active Substance: ERYTHROMYCIN
     Indication: Ill-defined disorder
     Dosage: 2 DF, QID (TAKE TWO TABLETS FOUR TIMES A DAY FOR 7 DAYS)
     Dates: start: 20240708, end: 20240715
  4. ENOXAPARIN SODIUM [Concomitant]
     Active Substance: ENOXAPARIN SODIUM
     Indication: Ill-defined disorder
     Dosage: UNK (INSERT THE CONTENTS OF ONE PRE-FILLED SYRINGE S)
     Dates: start: 20240806, end: 20240811
  5. CLOBETASONE BUTYRATE [Concomitant]
     Active Substance: CLOBETASONE BUTYRATE
     Indication: Ill-defined disorder
     Dosage: APPLY 1-2 TIMES/DAY
     Route: 061
     Dates: start: 20240812
  6. FERROUS FUMARATE [Concomitant]
     Active Substance: FERROUS FUMARATE
     Indication: Ill-defined disorder
     Dosage: 1 DF, QOD
     Dates: start: 20240812
  7. FOLIC ACID [Concomitant]
     Active Substance: FOLIC ACID
     Indication: Ill-defined disorder
     Dosage: 1 DF, QD
     Dates: start: 20240812
  8. FLUOXETINE [Concomitant]
     Active Substance: FLUOXETINE HYDROCHLORIDE
     Indication: Ill-defined disorder
     Dosage: 2 DF, QD
     Dates: start: 20221006
  9. DESOGESTREL [Concomitant]
     Active Substance: DESOGESTREL
     Indication: Ill-defined disorder
     Dosage: 1 DF, QD
     Dates: start: 20230405
  10. CHOLECALCIFEROL [Concomitant]
     Active Substance: CHOLECALCIFEROL
     Indication: Ill-defined disorder
     Dosage: 1 DF, QD
     Dates: start: 20231127
  11. LACTULOSE [Concomitant]
     Active Substance: LACTULOSE
     Indication: Ill-defined disorder
     Dosage: USE AS DIRECTED
     Dates: start: 20240125
  12. ONDANSETRON [Concomitant]
     Active Substance: ONDANSETRON
     Indication: Ill-defined disorder
     Dosage: UNK, PRN (TAKE ONE TWICE DAILY AS NEEDED)
     Dates: start: 20240125
  13. METFORMIN [Concomitant]
     Active Substance: METFORMIN HYDROCHLORIDE
     Indication: Ill-defined disorder
     Dosage: 1 DF, BID  (TAKE ONE TABLET TWICE A DAY WITH OR AFTER MEALS)
     Dates: start: 20240130
  14. LANCETIN [Concomitant]
     Indication: Ill-defined disorder
     Dosage: USE AS DIRECTED
     Dates: start: 20240131
  15. JAZZ [Concomitant]
     Indication: Ill-defined disorder
     Dosage: UNK
     Dates: start: 20240131
  16. HUMALOG [Concomitant]
     Active Substance: INSULIN LISPRO
     Indication: Ill-defined disorder
     Dosage: UNK UNK, PRN (INJECT THE REQUIRED AMOUNT OF UNITS BY SUBCUTAN...)
     Route: 058
     Dates: start: 20240214
  17. HUMULIN L [Concomitant]
     Active Substance: INSULIN HUMAN
     Indication: Ill-defined disorder
     Dosage: UNK UNK, PRN (INJECT THE REQUIRED AMOUNT OF UNITS BY SUBCUTAN)
     Route: 058
     Dates: start: 20240214

REACTIONS (1)
  - Rash [Recovering/Resolving]
